FAERS Safety Report 11922364 (Version 4)
Quarter: 2016Q2

REPORT INFORMATION
  Report Type: Spontaneous
  Country: US (occurrence: US)
  Receive Date: 20160115
  Receipt Date: 20160408
  Transmission Date: 20160815
  Serious: No
  Sender: FDA-Public Use
  Company Number: US-PFIZER INC-2016009693

PATIENT
  Age: 43 Year
  Sex: Male
  Weight: 77.11 kg

DRUGS (9)
  1. LETAIRIS [Concomitant]
     Active Substance: AMBRISENTAN
     Indication: LUNG DISORDER
     Dosage: 5 MG, DAILY
     Route: 048
     Dates: start: 2014
  2. REVATIO [Suspect]
     Active Substance: SILDENAFIL CITRATE
     Indication: CARDIAC DISORDER
  3. PROAIR HFA [Concomitant]
     Active Substance: ALBUTEROL SULFATE
     Indication: ASTHMA
     Dosage: ONE PUFF AS NEEDED
     Route: 048
     Dates: start: 2009
  4. CARVEDILOL. [Concomitant]
     Active Substance: CARVEDILOL
     Indication: LUNG DISORDER
     Dosage: 3.125MG ONE TABLET TWICE A DAY
     Route: 048
     Dates: start: 2009
  5. PREDNISONE. [Concomitant]
     Active Substance: PREDNISONE
     Indication: LUNG DISORDER
     Dosage: 10MG TABLETS, TWO TABLETS ONCE A DAY
     Route: 048
     Dates: start: 2009
  6. ALLOPURINOL. [Concomitant]
     Active Substance: ALLOPURINOL
     Indication: GOUT
     Dosage: 300MG TABLET, ONE TABLET PER DAY
     Route: 048
     Dates: start: 2012
  7. SPIRIVA [Concomitant]
     Active Substance: TIOTROPIUM BROMIDE MONOHYDRATE
     Indication: LUNG DISORDER
     Dosage: ONE CAPSULE INHALED ONCE A DAY IN THE MORNING
     Route: 055
     Dates: start: 2009
  8. REVATIO [Suspect]
     Active Substance: SILDENAFIL CITRATE
     Indication: PULMONARY HYPERTENSION
     Dosage: 20MG TABLET, EVERY SIX HOURS
     Route: 048
     Dates: start: 201301
  9. CARVEDILOL. [Concomitant]
     Active Substance: CARVEDILOL
     Indication: CARDIAC DISORDER

REACTIONS (2)
  - Nasopharyngitis [Recovering/Resolving]
  - Product use issue [Not Recovered/Not Resolved]

NARRATIVE: CASE EVENT DATE: 201301
